FAERS Safety Report 9087827 (Version 1)
Quarter: 2013Q1

REPORT INFORMATION
  Report Type: Report from Study
  Country: US (occurrence: US)
  Receive Date: 20130131
  Receipt Date: 20130131
  Transmission Date: 20140127
  Serious: No
  Sender: FDA-Public Use
  Company Number: US-ABBOTT-12P-163-1010864-00

PATIENT
  Sex: Female
  Weight: 66.28 kg

DRUGS (5)
  1. HUMIRA [Suspect]
     Indication: VASCULITIS
     Route: 058
     Dates: start: 201210
  2. HUMIRA [Suspect]
     Indication: NEUROPATHY PERIPHERAL
  3. IVIG [Concomitant]
     Indication: NEUROPATHY PERIPHERAL
     Route: 042
     Dates: start: 2004
  4. NEURONTIN [Concomitant]
     Indication: NEUROPATHY PERIPHERAL
  5. ZOLOFT [Concomitant]
     Indication: DEPRESSION

REACTIONS (1)
  - Off label use [Not Recovered/Not Resolved]
